FAERS Safety Report 16224834 (Version 1)
Quarter: 2019Q2

REPORT INFORMATION
  Report Type: Report from Study
  Country: US (occurrence: US)
  Receive Date: 20190422
  Receipt Date: 20190422
  Transmission Date: 20190711
  Serious: Yes (Hospitalization)
  Sender: FDA-Public Use
  Company Number: US-AMGEN-USANI2019061545

PATIENT
  Age: 36 Year
  Sex: Female
  Weight: 74.09 kg

DRUGS (17)
  1. IMODIUM A-D [Concomitant]
     Active Substance: LOPERAMIDE HYDROCHLORIDE
     Dosage: 2 MILLIGRAM
     Route: 048
     Dates: start: 20190211
  2. LORAZEPAM. [Concomitant]
     Active Substance: LORAZEPAM
     Dosage: 0.5 MILLIGRAM
     Route: 048
     Dates: start: 20190208
  3. OLANZAPINE. [Concomitant]
     Active Substance: OLANZAPINE
     Dosage: 2.5 MILLIGRAM
     Route: 048
     Dates: start: 20190208
  4. DEXAMETHASONE. [Concomitant]
     Active Substance: DEXAMETHASONE
     Dosage: 8-10 MILLIGRAM
     Route: 042
     Dates: start: 20190207
  5. TYLENOL [Concomitant]
     Active Substance: ACETAMINOPHEN
     Dosage: 1000 MILLIGRAM
     Route: 048
     Dates: start: 2004
  6. CARBOPLATIN. [Concomitant]
     Active Substance: CARBOPLATIN
     Dosage: 839 MILLIGRAM
     Route: 042
     Dates: start: 20190208
  7. DOCETAXEL. [Concomitant]
     Active Substance: DOCETAXEL
     Dosage: 138 MILLIGRAM
     Route: 042
     Dates: start: 20190208
  8. TRASTUZUMAB. [Concomitant]
     Active Substance: TRASTUZUMAB
     Dosage: 445-591 MILLIGRAM
     Route: 042
     Dates: start: 20190208
  9. PERTUZUMAB. [Concomitant]
     Active Substance: PERTUZUMAB
     Dosage: 420-840 MILLIGRAM
     Route: 042
     Dates: start: 20190208
  10. CLARITIN [Concomitant]
     Active Substance: LORATADINE
     Dosage: 10 MILLIGRAM
     Route: 048
     Dates: start: 20190208
  11. PROMETHAZINE [Concomitant]
     Active Substance: PROMETHAZINE\PROMETHAZINE HYDROCHLORIDE
     Dosage: 25 MILLIGRAM
     Route: 048
     Dates: start: 20190322
  12. LIDOCAINE AND PRILOCAINE [Concomitant]
     Active Substance: LIDOCAINE\PRILOCAINE
     Dosage: 2.5 UNK
     Route: 061
     Dates: start: 20190208
  13. APREPITANT. [Concomitant]
     Active Substance: APREPITANT
     Dosage: 130 MILLIGRAM
     Route: 042
     Dates: start: 20190208
  14. PEGFILGRASTIM [Suspect]
     Active Substance: PEGFILGRASTIM
     Indication: NEUTROPENIA
     Dosage: 6 MILLIGRAM
     Route: 058
     Dates: start: 20190208
  15. PALONOSETRON HCL [Concomitant]
     Active Substance: PALONOSETRON HYDROCHLORIDE
     Dosage: 0.25 MILLIGRAM
     Route: 042
     Dates: start: 20190208
  16. DECADRON [Concomitant]
     Active Substance: DEXAMETHASONE
     Dosage: 10 MILLIGRAM
     Route: 042
     Dates: start: 20190208
  17. PROCHLORPERAZINE MALEATE. [Concomitant]
     Active Substance: PROCHLORPERAZINE MALEATE
     Dosage: 10 MILLIGRAM
     Route: 048
     Dates: start: 20190208

REACTIONS (1)
  - Chest pain [Recovered/Resolved]

NARRATIVE: CASE EVENT DATE: 20190328
